FAERS Safety Report 13964437 (Version 9)
Quarter: 2018Q3

REPORT INFORMATION
  Report Type: Spontaneous
  Country: DE (occurrence: DE)
  Receive Date: 20170913
  Receipt Date: 20180927
  Transmission Date: 20181010
  Serious: Yes (Other)
  Sender: FDA-Public Use
  Company Number: DE-PFIZER INC-2017393942

PATIENT
  Age: 82 Year
  Sex: Female
  Weight: 83 kg

DRUGS (19)
  1. TRANEXAMIC ACID. [Suspect]
     Active Substance: TRANEXAMIC ACID
     Dosage: 1 G, UNK
     Route: 065
     Dates: start: 20170811, end: 20170811
  2. ALLOPURINOL. [Concomitant]
     Active Substance: ALLOPURINOL
     Dosage: 1 DF, 1X/DAY, 1?0?0
     Route: 065
  3. HEPARIN?RATIOPHARM [Suspect]
     Active Substance: HEPARIN SODIUM
     Dosage: 45000 IU, 1X/DAY
     Route: 065
     Dates: start: 20170811
  4. TORASEMID [Concomitant]
     Active Substance: TORSEMIDE
     Dosage: UNK
     Route: 065
  5. HEPARIN?RATIOPHARM [Suspect]
     Active Substance: HEPARIN SODIUM
     Dosage: 45000 IU, 1X/DAY
     Route: 065
     Dates: start: 20170811
  6. CUSTODIOL [Concomitant]
     Dosage: 950 ML, UNK
     Route: 065
  7. CITALOPRAM [Concomitant]
     Active Substance: CITALOPRAM HYDROBROMIDE
     Dosage: UNK
     Route: 065
  8. HEPARIN?RATIOPHARM [Suspect]
     Active Substance: HEPARIN SODIUM
     Dosage: 45000 IU, DAILY
     Route: 042
     Dates: start: 20170811, end: 20170811
  9. HEPARIN?RATIOPHARM [Suspect]
     Active Substance: HEPARIN SODIUM
     Dosage: 45000 IU, 1X/DAY
     Route: 065
     Dates: start: 20170811
  10. NORADRENALINE [Suspect]
     Active Substance: NOREPINEPHRINE
     Dosage: 1.0 UG/KG/MIN 9 HOURS AFTER SURGERY
     Route: 065
     Dates: start: 20170811
  11. ASPIRIN. [Concomitant]
     Active Substance: ASPIRIN
     Dosage: 1 DF, 1X/DAY (0?1?0)
     Route: 048
  12. TRANEXAMIC ACID. [Suspect]
     Active Substance: TRANEXAMIC ACID
     Dosage: 2 G, DAILY
     Route: 065
     Dates: start: 20170811, end: 20170811
  13. ZOPICLON [Concomitant]
     Active Substance: ZOPICLONE
     Dosage: UNK
     Route: 065
  14. AMLODIPINE [Concomitant]
     Active Substance: AMLODIPINE BESYLATE
     Dosage: 1 DF, 1X/DAY, 1?0?0
     Route: 065
  15. SPIRONOLACTON [Concomitant]
     Active Substance: SPIRONOLACTONE
     Dosage: 1 DF, 1X/DAY, 1?0?0
     Route: 065
  16. TRANEXAMIC ACID. [Suspect]
     Active Substance: TRANEXAMIC ACID
     Dosage: 10 ML, UNK
     Route: 065
     Dates: start: 20170811, end: 20170811
  17. NORADRENALINE [Suspect]
     Active Substance: NOREPINEPHRINE
     Dosage: 0.9 UG/KG/MIN, 4 HOURS AFTER SURGERY
     Route: 065
     Dates: start: 20170811
  18. SEVORANE [Concomitant]
     Active Substance: SEVOFLURANE
     Dosage: 1.0 VOL%
     Route: 065
  19. STEROFUNDIN [Concomitant]
     Active Substance: CALCIUM CHLORIDE\MAGNESIUM CHLORIDE\POTASSIUM CHLORIDE\SODIUM ACETATE\SODIUM CHLORIDE
     Dosage: 1250 ML, UNK
     Route: 065
     Dates: start: 20170811

REACTIONS (6)
  - Renal failure [Unknown]
  - Therapeutic response decreased [Unknown]
  - Haemoglobin increased [Recovered/Resolved]
  - Hepatic failure [Unknown]
  - Vasodilatation [Recovered/Resolved]
  - Drug ineffective [Unknown]

NARRATIVE: CASE EVENT DATE: 20170811
